FAERS Safety Report 7903421-5 (Version None)
Quarter: 2011Q4

REPORT INFORMATION
  Report Type: 
  Country: None (occurrence: None)
  Receive Date: 20111109
  Receipt Date: 20111101
  Transmission Date: 20120403
  Serious: Yes (Death)
  Sender: FDA-Public Use
  Company Number: JP-BAYER-200913640BYL

PATIENT
  Age: 65 Year
  Sex: Female

DRUGS (2)
  1. CALCIUM CARBONATE [Concomitant]
     Dosage: 3.0 MG (DAILY DOSE), , ORAL
     Route: 048
     Dates: start: 20040712, end: 20090315
  2. NEXAVAR [Suspect]
     Indication: RENAL CELL CARCINOMA STAGE IV
     Dosage: DAILY DOSE 400 MG
     Route: 048
     Dates: start: 20080728, end: 20090413

REACTIONS (4)
  - CACHEXIA [None]
  - HYPERTENSION [None]
  - HYPOPHOSPHATAEMIA [None]
  - PALMAR-PLANTAR ERYTHRODYSAESTHESIA SYNDROME [None]
